FAERS Safety Report 7481298-2 (Version None)
Quarter: 2011Q2

REPORT INFORMATION
  Report Type: 
  Country: None (occurrence: None)
  Receive Date: 20110506
  Receipt Date: 20110426
  Transmission Date: 20111010
  Serious: Yes (Other)
  Sender: FDA-Public Use
  Company Number: DSU-2011-03013

PATIENT
  Age: 54 Year
  Sex: Male

DRUGS (2)
  1. LEXAPRO(ESCITALOPRAM OXALATE)(ESCITALOPRAM OXALATE) [Concomitant]
  2. AZOR [Suspect]
     Indication: HYPERTENSION
     Dosage: 10/20MG (QD), PER ORAL
     Route: 048

REACTIONS (4)
  - DEPRESSION [None]
  - CONDITION AGGRAVATED [None]
  - SUICIDAL BEHAVIOUR [None]
  - HEADACHE [None]
